FAERS Safety Report 8620960-2 (Version None)
Quarter: 2012Q3

REPORT INFORMATION
  Report Type: 
  Country: None (occurrence: None)
  Receive Date: 20120824
  Receipt Date: 20120814
  Transmission Date: 20120928
  Serious: Yes (Hospitalization, Other)
  Sender: FDA-Public Use
  Company Number: CA-ELI_LILLY_AND_COMPANY-CA201207005169

PATIENT
  Age: 57 Year
  Sex: Female

DRUGS (5)
  1. IBUPROFEN (ADVIL) [Concomitant]
     Dosage: UNK, PRN
  2. VITAMIN D [Concomitant]
  3. FORTEO [Suspect]
     Dosage: 20 UG, QD
     Route: 058
     Dates: start: 20110622
  4. ALEVE [Concomitant]
     Dosage: UNK, PRN
  5. FORTEO [Suspect]
     Indication: OSTEOPOROSIS
     Dosage: 20 UG, QD
     Route: 058
     Dates: start: 20110622

REACTIONS (3)
  - FALL [None]
  - MOBILITY DECREASED [None]
  - PATELLA FRACTURE [None]
